FAERS Safety Report 5899111-3 (Version None)
Quarter: 2008Q3

REPORT INFORMATION
  Report Type: 
  Country: None (occurrence: None)
  Receive Date: 20080917
  Receipt Date: 20080522
  Transmission Date: 20090109
  Serious: Yes (Other)
  Sender: FDA-Public Use
  Company Number: PHEH2008US04801

PATIENT
  Sex: Female

DRUGS (1)
  1. FEMARA [Suspect]
     Dates: start: 20050101

REACTIONS (3)
  - BLOOD PRESSURE SYSTOLIC INCREASED [None]
  - HOT FLUSH [None]
  - WEIGHT INCREASED [None]
